FAERS Safety Report 15001589 (Version 1)
Quarter: 2018Q2

REPORT INFORMATION
  Report Type: Report from Study
  Country: GB (occurrence: GB)
  Receive Date: 20180612
  Receipt Date: 20180612
  Transmission Date: 20180711
  Serious: Yes (Hospitalization, Other)
  Sender: FDA-Public Use
  Company Number: GB-MYLANLABS-2018M1038527

PATIENT
  Age: 15 Year
  Sex: Female
  Weight: 71 kg

DRUGS (8)
  1. DERMOL                             /01330701/ [Concomitant]
     Indication: GRANULOMA
     Dosage: LOTION
     Route: 061
     Dates: start: 2016
  2. AZATHIOPRINE. [Suspect]
     Active Substance: AZATHIOPRINE
     Dosage: 150 MG, QD
     Route: 048
     Dates: start: 20161212
  3. PROTOPIC [Concomitant]
     Active Substance: TACROLIMUS
     Indication: GRANULOMA
     Dosage: 0.1 %, QD
     Route: 061
     Dates: start: 2016
  4. MOVICOL [Concomitant]
     Active Substance: POLYETHYLENE GLYCOL 3350\POTASSIUM CHLORIDE\SODIUM BICARBONATE\SODIUM CHLORIDE
     Indication: CROHN^S DISEASE
     Dosage: 2 DF, QD
     Route: 048
     Dates: start: 20161109
  5. FERROUS SULFATE. [Concomitant]
     Active Substance: FERROUS SULFATE
     Indication: CROHN^S DISEASE
     Dosage: 200 MG, QD
     Route: 048
     Dates: start: 20121003
  6. HUMIRA [Suspect]
     Active Substance: ADALIMUMAB
     Indication: CROHN^S DISEASE
     Dosage: 80 MG, Q2W
     Route: 058
     Dates: start: 20170112, end: 20170727
  7. AZATHIOPRINE. [Suspect]
     Active Substance: AZATHIOPRINE
     Indication: CROHN^S DISEASE
     Dosage: 100 MG, QD
     Route: 048
     Dates: start: 20160831, end: 20161211
  8. CHLORPHENAMINE [Concomitant]
     Active Substance: CHLORPHENIRAMINE MALEATE
     Indication: RASH
     Dosage: 4 MG, QD
     Dates: start: 20170726, end: 201708

REACTIONS (6)
  - Genital rash [Not Recovered/Not Resolved]
  - Crohn^s disease [Recovered/Resolved]
  - Diarrhoea [Not Recovered/Not Resolved]
  - Oedema genital [Not Recovered/Not Resolved]
  - Rash [Not Recovered/Not Resolved]
  - Pyrexia [Not Recovered/Not Resolved]

NARRATIVE: CASE EVENT DATE: 201707
